FAERS Safety Report 14662532 (Version 2)
Quarter: 2018Q4

REPORT INFORMATION
  Report Type: Spontaneous
  Country: TH (occurrence: TH)
  Receive Date: 20180321
  Receipt Date: 20181011
  Transmission Date: 20190204
  Serious: Yes (Life-Threatening)
  Sender: FDA-Public Use
  Company Number: TH-NOVITIUM PHARMA LLC-2018-TH-000001

PATIENT
  Age: 2 Year
  Sex: Female
  Weight: 12 kg

DRUGS (1)
  1. DAPSONE. [Suspect]
     Active Substance: DAPSONE
     Indication: LINEAR IGA DISEASE
     Dosage: 18 MG PER DAY (1.5 MG/KG/DAY)
     Route: 065

REACTIONS (10)
  - Secretion discharge [None]
  - Drug reaction with eosinophilia and systemic symptoms [Unknown]
  - Pyrexia [None]
  - Hepatitis [Unknown]
  - Skin ulcer [None]
  - Product use in unapproved indication [None]
  - Lymphadenopathy [None]
  - Haemolysis [None]
  - Erythema [None]
  - Skin plaque [None]
